FAERS Safety Report 18155848 (Version 4)
Quarter: 2025Q1

REPORT INFORMATION
  Report Type: Spontaneous
  Country: CZ (occurrence: CZ)
  Receive Date: 20200817
  Receipt Date: 20250322
  Transmission Date: 20250409
  Serious: Yes (Other)
  Sender: AUROBINDO
  Company Number: CZ-SA-2020SA199834

PATIENT
  Age: 25 Year
  Sex: Female

DRUGS (50)
  1. MELPHALAN [Suspect]
     Active Substance: MELPHALAN
     Indication: Immunosuppressant drug therapy
     Route: 065
     Dates: start: 20180612
  2. CARMUSTINE [Suspect]
     Active Substance: CARMUSTINE
     Indication: Immunosuppressant drug therapy
     Route: 065
     Dates: start: 20180612
  3. CYCLOPHOSPHAMIDE [Suspect]
     Active Substance: CYCLOPHOSPHAMIDE
     Indication: Haematopoietic stem cell mobilisation
     Route: 065
     Dates: start: 20180106
  4. CYTARABINE [Suspect]
     Active Substance: CYTARABINE
     Indication: Immunosuppressant drug therapy
     Route: 065
     Dates: start: 20180612
  5. ETOPOSIDE [Suspect]
     Active Substance: ETOPOSIDE
     Indication: Immunosuppressant drug therapy
     Route: 065
     Dates: start: 20180612
  6. PREDNISOLONE [Suspect]
     Active Substance: PREDNISOLONE
     Indication: Haematopoietic stem cell mobilisation
     Route: 065
     Dates: start: 2018
  7. PREDNISOLONE [Suspect]
     Active Substance: PREDNISOLONE
     Dosage: 1 MILLIGRAM/KILOGRAM, ONCE A DAY
     Route: 065
     Dates: start: 20180106
  8. PREDNISOLONE [Suspect]
     Active Substance: PREDNISOLONE
     Dosage: 25 MILLIGRAM, ONCE A DAY
     Route: 065
     Dates: start: 20180618
  9. SULFAMETHOXAZOLE AND TRIMETHOPRIM [Suspect]
     Active Substance: SULFAMETHOXAZOLE\TRIMETHOPRIM
     Indication: Antibiotic prophylaxis
     Dosage: 480 MILLIGRAM, ONCE A DAY
     Route: 065
     Dates: start: 201806
  10. THYMOGLOBULIN [Suspect]
     Active Substance: LAPINE T-LYMPHOCYTE IMMUNE GLOBULIN
     Indication: Immunosuppressant drug therapy
     Route: 065
     Dates: start: 20180612
  11. METHYLPREDNISOLONE [Suspect]
     Active Substance: METHYLPREDNISOLONE
     Indication: Premedication
     Route: 042
     Dates: start: 201703
  12. METHYLPREDNISOLONE [Suspect]
     Active Substance: METHYLPREDNISOLONE
     Indication: Multiple sclerosis
     Route: 042
     Dates: start: 2017
  13. METHYLPREDNISOLONE [Suspect]
     Active Substance: METHYLPREDNISOLONE
     Route: 042
     Dates: start: 201806
  14. METHYLPREDNISOLONE [Suspect]
     Active Substance: METHYLPREDNISOLONE
     Route: 042
     Dates: start: 201701
  15. METHYLPREDNISOLONE [Suspect]
     Active Substance: METHYLPREDNISOLONE
     Route: 042
     Dates: start: 2016
  16. VALACYCLOVIR HYDROCHLORIDE [Concomitant]
     Active Substance: VALACYCLOVIR HYDROCHLORIDE
     Indication: Prophylaxis
     Dosage: 500 MILLIGRAM, ONCE A DAY
     Route: 065
     Dates: start: 201806
  17. GRANULOCYTE COLONY-STIMULATING FACTOR NOS [Concomitant]
     Active Substance: GRANULOCYTE COLONY-STIMULATING FACTOR NOS
     Indication: Haematopoietic stem cell mobilisation
     Route: 065
     Dates: start: 20180106
  18. GRANULOCYTE COLONY-STIMULATING FACTOR NOS [Concomitant]
     Active Substance: GRANULOCYTE COLONY-STIMULATING FACTOR NOS
     Route: 065
     Dates: start: 20180614, end: 20180618
  19. MEROPENEM [Concomitant]
     Active Substance: MEROPENEM
     Indication: Febrile neutropenia
     Route: 065
     Dates: start: 201806
  20. MEROPENEM [Concomitant]
     Active Substance: MEROPENEM
     Indication: Pyrexia
  21. MEROPENEM [Concomitant]
     Active Substance: MEROPENEM
     Indication: Vomiting
  22. MEROPENEM [Concomitant]
     Active Substance: MEROPENEM
     Indication: Nausea
  23. MEROPENEM [Concomitant]
     Active Substance: MEROPENEM
     Indication: Mucosal inflammation
  24. MEROPENEM [Concomitant]
     Active Substance: MEROPENEM
     Indication: Pharyngeal inflammation
  25. PIPERACILLIN AND TAZOBACTAM [Concomitant]
     Active Substance: PIPERACILLIN SODIUM\TAZOBACTAM SODIUM
     Indication: Febrile neutropenia
     Route: 065
     Dates: start: 201806
  26. PIPERACILLIN AND TAZOBACTAM [Concomitant]
     Active Substance: PIPERACILLIN SODIUM\TAZOBACTAM SODIUM
     Indication: Pyrexia
  27. PIPERACILLIN AND TAZOBACTAM [Concomitant]
     Active Substance: PIPERACILLIN SODIUM\TAZOBACTAM SODIUM
     Indication: Mucosal inflammation
  28. PIPERACILLIN AND TAZOBACTAM [Concomitant]
     Active Substance: PIPERACILLIN SODIUM\TAZOBACTAM SODIUM
     Indication: Vomiting
  29. PIPERACILLIN AND TAZOBACTAM [Concomitant]
     Active Substance: PIPERACILLIN SODIUM\TAZOBACTAM SODIUM
     Indication: Nausea
  30. PIPERACILLIN AND TAZOBACTAM [Concomitant]
     Active Substance: PIPERACILLIN SODIUM\TAZOBACTAM SODIUM
     Indication: Pharyngeal inflammation
  31. COTRIMOXAZOLE [Concomitant]
     Active Substance: SULFAMETHOXAZOLE\TRIMETHOPRIM
     Indication: Antibiotic prophylaxis
     Dosage: 480 MILLIGRAM, ONCE A DAY
     Route: 065
     Dates: start: 201806
  32. LYNESTRENOL [Concomitant]
     Active Substance: LYNESTRENOL
     Indication: Product used for unknown indication
     Dosage: 10 MILLIGRAM, ONCE A DAY
     Route: 065
     Dates: start: 201806
  33. AMIKACIN [Concomitant]
     Active Substance: AMIKACIN
     Indication: Febrile neutropenia
     Route: 065
     Dates: start: 201806
  34. AMIKACIN [Concomitant]
     Active Substance: AMIKACIN
     Indication: Mucosal inflammation
  35. AMIKACIN [Concomitant]
     Active Substance: AMIKACIN
     Indication: Pyrexia
  36. AMIKACIN [Concomitant]
     Active Substance: AMIKACIN
     Indication: Vomiting
  37. AMIKACIN [Concomitant]
     Active Substance: AMIKACIN
     Indication: Nausea
  38. AMIKACIN [Concomitant]
     Active Substance: AMIKACIN
     Indication: Pharyngeal inflammation
  39. VANCOMYCIN [Concomitant]
     Active Substance: VANCOMYCIN
     Indication: Pyrexia
     Route: 065
     Dates: start: 201806
  40. VANCOMYCIN [Concomitant]
     Active Substance: VANCOMYCIN
     Indication: Vomiting
  41. VANCOMYCIN [Concomitant]
     Active Substance: VANCOMYCIN
     Indication: Nausea
  42. VANCOMYCIN [Concomitant]
     Active Substance: VANCOMYCIN
     Indication: Mucosal inflammation
  43. VANCOMYCIN [Concomitant]
     Active Substance: VANCOMYCIN
     Indication: Febrile neutropenia
  44. VANCOMYCIN [Concomitant]
     Active Substance: VANCOMYCIN
     Indication: Pharyngeal inflammation
  45. PANTOPRAZOLE [Concomitant]
     Active Substance: PANTOPRAZOLE
     Indication: Gastrointestinal disorder prophylaxis
     Route: 016
     Dates: start: 201806
  46. MAGNESIUM [Concomitant]
     Active Substance: MAGNESIUM
     Indication: Tetany
     Route: 065
  47. CLONAZEPAM [Concomitant]
     Active Substance: CLONAZEPAM
     Indication: Tetany
     Route: 065
  48. CARBAMAZEPINE [Concomitant]
     Active Substance: CARBAMAZEPINE
     Indication: Tetany
     Route: 065
  49. VALACYCLOVIR [Concomitant]
     Active Substance: VALACYCLOVIR HYDROCHLORIDE
     Indication: Product used for unknown indication
     Route: 065
  50. METRONIDAZOLE [Concomitant]
     Active Substance: METRONIDAZOLE
     Indication: Colitis
     Route: 065

REACTIONS (10)
  - Escherichia bacteraemia [Recovered/Resolved]
  - Diarrhoea [Recovered/Resolved]
  - Clostridium colitis [Recovered/Resolved]
  - Febrile neutropenia [Recovered/Resolved]
  - Influenza [Recovered/Resolved]
  - Pharyngeal inflammation [Recovered/Resolved]
  - Nausea [Recovered/Resolved]
  - Vomiting [Recovered/Resolved]
  - Stomatitis [Recovered/Resolved]
  - Pyrexia [Recovered/Resolved]

NARRATIVE: CASE EVENT DATE: 20180301
